FAERS Safety Report 6642465-0 (Version None)
Quarter: 2010Q1

REPORT INFORMATION
  Report Type: 
  Country: None (occurrence: None)
  Receive Date: 20100319
  Receipt Date: 20100315
  Transmission Date: 20100710
  Serious: Yes (Hospitalization)
  Sender: FDA-Public Use
  Company Number: US-ROCHE-691693

PATIENT
  Sex: Female
  Weight: 91.4 kg

DRUGS (17)
  1. TOCILIZUMAB [Suspect]
     Indication: RHEUMATOID ARTHRITIS
     Dosage: LAST DOSE PRIOR TO SAE: 24 FEB 2010
     Route: 042
     Dates: start: 20060927
  2. TOCILIZUMAB [Suspect]
     Dosage: PATIENT WAS PREVIOUSLY ENROLLED IN THE STUDY WA18063.
     Route: 042
     Dates: start: 20060411
  3. LIPITOR [Concomitant]
     Dates: start: 20050101
  4. LASIX [Concomitant]
     Dates: start: 20081201
  5. APRESOLINE [Concomitant]
     Dates: start: 20090319
  6. NIFEDIPINE [Concomitant]
     Dates: start: 20090501
  7. METOPROLOL TARTRATE [Concomitant]
     Dates: start: 20091218
  8. POTASSIUM CHLORIDE [Concomitant]
     Dates: start: 20051101
  9. PROPOXYPHENE HCL [Concomitant]
     Dosage: TDD: 2 PRN
     Dates: start: 20020101
  10. VITAMIN C [Concomitant]
     Dates: start: 20071022
  11. PRILOSEC [Concomitant]
     Dates: start: 20081201
  12. ARICEPT [Concomitant]
     Dates: start: 20090421
  13. ALENDRONATE SODIUM [Concomitant]
     Dates: start: 20090424
  14. LISINOPRIL [Concomitant]
     Dates: start: 20091116
  15. NORVASC [Concomitant]
     Dates: start: 20091218
  16. PREDNISONE [Concomitant]
     Dates: start: 20090703
  17. ASPIRIN [Concomitant]
     Dates: start: 20091218

REACTIONS (1)
  - GASTROINTESTINAL HAEMORRHAGE [None]
